FAERS Safety Report 9062398 (Version 2)
Quarter: 2013Q1

REPORT INFORMATION
  Report Type: Spontaneous
  Country: ES (occurrence: ES)
  Receive Date: 20130213
  Receipt Date: 20130228
  Transmission Date: 20140127
  Serious: No
  Sender: FDA-Public Use
  Company Number: ES-GLAXOSMITHKLINE-B0866657A

PATIENT
  Age: 50 Year
  Sex: Male

DRUGS (2)
  1. TROBALT [Suspect]
     Indication: PARTIAL SEIZURES
     Route: 048
     Dates: start: 20120705
  2. TEGRETOL [Suspect]
     Indication: PARTIAL SEIZURES
     Dosage: 1200MG PER DAY
     Route: 048

REACTIONS (4)
  - Hyponatraemia [Recovered/Resolved]
  - Dizziness [Recovered/Resolved]
  - Dizziness [Recovered/Resolved]
  - Drug ineffective [Unknown]
